FAERS Safety Report 20601551 (Version 1)
Quarter: 2022Q1

REPORT INFORMATION
  Report Type: Spontaneous
  Country: GB (occurrence: None)
  Receive Date: 20220316
  Receipt Date: 20220316
  Transmission Date: 20220423
  Serious: Yes (Other)
  Sender: FDA-Public Use
  Company Number: 2022A112235

PATIENT
  Age: 40 Year
  Sex: Female

DRUGS (1)
  1. BENRALIZUMAB [Suspect]
     Active Substance: BENRALIZUMAB
     Indication: Asthma
     Dosage: 30MG EVERY 4 WEEKS FOR THE FIRST 3 DOSES THEN EVERY 8 WEEKS THEREAFTER
     Route: 065
     Dates: start: 20211216, end: 20220217

REACTIONS (4)
  - Eye swelling [Unknown]
  - Vision blurred [Unknown]
  - Vomiting [Unknown]
  - Headache [Not Recovered/Not Resolved]

NARRATIVE: CASE EVENT DATE: 20220111
